FAERS Safety Report 4822691-3 (Version None)
Quarter: 2005Q4

REPORT INFORMATION
  Report Type: 
  Country: None (occurrence: None)
  Receive Date: 20051108
  Receipt Date: 20051103
  Transmission Date: 20060501
  Serious: Yes (Hospitalization)
  Sender: FDA-Public Use
  Company Number: IT-GLAXOSMITHKLINE-B0399611A

PATIENT
  Age: 76 Year
  Sex: Female

DRUGS (7)
  1. DIGOXIN [Suspect]
     Dosage: .13MG PER DAY
     Dates: start: 20020123, end: 20051009
  2. CARBAMAZEPINE [Concomitant]
     Dosage: 200MG PER DAY
     Route: 048
  3. CITICOLINE [Concomitant]
     Dosage: 500MG PER DAY
     Route: 042
  4. FRUSEMIDE [Concomitant]
     Dosage: 25MG PER DAY
     Route: 048
  5. GLIBENCLAMIDE + METFORMIN [Concomitant]
     Route: 048
  6. NITRATES [Concomitant]
     Dosage: 5MG PER DAY
     Route: 062
  7. PROMAZINE HCL [Concomitant]
     Dosage: 30ML PER DAY
     Route: 048

REACTIONS (3)
  - SYNCOPE [None]
  - THERAPEUTIC AGENT TOXICITY [None]
  - VOMITING [None]
